FAERS Safety Report 24644738 (Version 1)
Quarter: 2024Q4

REPORT INFORMATION
  Report Type: Spontaneous
  Country: US (occurrence: US)
  Receive Date: 20241121
  Receipt Date: 20241121
  Transmission Date: 20250114
  Serious: No
  Sender: SANOFI AVENTIS
  Company Number: US-SA-2024SA337670

PATIENT
  Age: 16 Year
  Sex: Male

DRUGS (5)
  1. NEXVIAZYME [Suspect]
     Active Substance: AVALGLUCOSIDASE ALFA-NGPT
     Indication: Glycogen storage disease type II
     Dosage: 2600 MG, QOW
     Route: 042
     Dates: start: 202310
  2. DEXTROSE [Concomitant]
     Active Substance: DEXTROSE MONOHYDRATE
     Dosage: UNK
  3. STERILE WATER [Concomitant]
     Active Substance: WATER
     Dosage: UNK
  4. SODIUM CHLORIDE [Concomitant]
     Active Substance: SODIUM CHLORIDE
     Dosage: UNK
  5. BACTERIOSTATIC WATER [Concomitant]
     Active Substance: WATER

REACTIONS (4)
  - Pyrexia [Recovering/Resolving]
  - Tachycardia [Recovering/Resolving]
  - Headache [Recovering/Resolving]
  - Cough [Recovering/Resolving]

NARRATIVE: CASE EVENT DATE: 20241101
